FAERS Safety Report 6755575-4 (Version None)
Quarter: 2010Q2

REPORT INFORMATION
  Report Type: 
  Country: None (occurrence: None)
  Receive Date: 20100602
  Receipt Date: 20100515
  Transmission Date: 20101027
  Serious: Yes (Hospitalization)
  Sender: FDA-Public Use
  Company Number: 2010AP001028

PATIENT
  Age: 80 Year
  Sex: Female

DRUGS (8)
  1. ENALAPRIL MALEATE [Suspect]
     Indication: HYPERTENSION
     Dosage: 5 MG; QD;, 10 MG; QD;
  2. LEVOFLOXACIN [Suspect]
     Indication: PNEUMONIA
     Dosage: 500 MG; QD;
  3. CODEINE SULFATE [Suspect]
     Indication: COUGH
  4. GUAIFENESIN [Concomitant]
  5. PARACETAMOL [Concomitant]
  6. ALENDRONIC ACID [Concomitant]
  7. CALCIUM CARBONATE [Concomitant]
  8. HYDROCHLOROTHIAZIDE [Concomitant]

REACTIONS (8)
  - CLOSTRIDIAL INFECTION [None]
  - COUGH [None]
  - DEHYDRATION [None]
  - DELIRIUM [None]
  - DRUG PRESCRIBING ERROR [None]
  - ENTEROCOLITIS [None]
  - LETHARGY [None]
  - PYREXIA [None]
